FAERS Safety Report 8354190 (Version 3)
Quarter: 2013Q2

REPORT INFORMATION
  Report Type: Spontaneous
  Country: US (occurrence: None)
  Receive Date: 20120113
  Receipt Date: 20130327
  Transmission Date: 20140414
  Serious: Yes (Other)
  Sender: FDA-Public Use
  Company Number: 2012-0003

PATIENT
  Age: 70 Year
  Sex: Male
  Weight: 106.6 kg

DRUGS (1)
  1. SOMATULINE DEPOT [Suspect]
     Indication: ACROMEGALY
     Dosage: 90 MG (90 MG, 1 IN 28 D), SUBCUTANEOUS
     Route: 058
     Dates: start: 20110429

REACTIONS (2)
  - CONDITION AGGRAVATED [None]
  - SINUS CONGESTION [None]
